FAERS Safety Report 8427615-8 (Version None)
Quarter: 2012Q2

REPORT INFORMATION
  Report Type: 
  Country: None (occurrence: None)
  Receive Date: 20120323
  Receipt Date: 20111222
  Transmission Date: 20120825
  Serious: Yes (Hospitalization)
  Sender: FDA-Public Use
  Company Number: 163-21880-11113958

PATIENT
  Age: 62 Year
  Sex: Male
  Weight: 68.9467 kg

DRUGS (4)
  1. REVLIMID [Suspect]
     Dosage: 15 MG, DAILY X 14 DAYS, PO : 25 MG, 1 IN 1 D, PO
     Route: 048
     Dates: start: 20110301
  2. REVLIMID [Suspect]
     Dosage: 15 MG, DAILY X 14 DAYS, PO : 25 MG, 1 IN 1 D, PO
     Route: 048
     Dates: start: 20111001, end: 20111125
  3. DEXAMETHASONE [Concomitant]
  4. WARFARIN SODIUM [Concomitant]

REACTIONS (1)
  - ANAEMIA [None]
